FAERS Safety Report 16354380 (Version 3)
Quarter: 2019Q3

REPORT INFORMATION
  Report Type: Report from Study
  Country: US (occurrence: US)
  Receive Date: 20190524
  Receipt Date: 20190704
  Transmission Date: 20191004
  Serious: Yes (Other)
  Sender: FDA-Public Use
  Company Number: US-PFIZER INC-2019207948

PATIENT
  Age: 15 Year
  Sex: Female
  Weight: 72.8 kg

DRUGS (5)
  1. FERROUS SULFATE. [Concomitant]
     Active Substance: FERROUS SULFATE
     Indication: ANAEMIA
     Dosage: 325 MG, 2X/DAY (1 TABLET BID)
     Route: 048
     Dates: start: 20190201
  2. NAPROXEN. [Concomitant]
     Active Substance: NAPROXEN
     Indication: STILL^S DISEASE
     Dosage: 500 MG, 2X/DAY (1 TABLET TWICE A DAY)
     Route: 048
     Dates: start: 20190201
  3. XELJANZ [Suspect]
     Active Substance: TOFACITINIB CITRATE
     Indication: STILL^S DISEASE
     Dosage: 5 MG, 2X/DAY
     Route: 048
     Dates: start: 20190305, end: 20190516
  4. FAMOTIDINE. [Concomitant]
     Active Substance: FAMOTIDINE
     Indication: GASTROOESOPHAGEAL REFLUX DISEASE
     Dosage: 20 MG, TABLET ONCE DAILY
     Route: 048
     Dates: start: 20190201
  5. VITAMIN D [COLECALCIFEROL] [Concomitant]
     Active Substance: CHOLECALCIFEROL
     Indication: VITAMIN D DEFICIENCY
     Dosage: 1000 IU, 2X/DAY (1 TABLET TWICE DAILY)
     Route: 048
     Dates: start: 20190201

REACTIONS (1)
  - Haemophagocytic lymphohistiocytosis [Recovered/Resolved]

NARRATIVE: CASE EVENT DATE: 20190513
